FAERS Safety Report 9701586 (Version 2)
Quarter: 2013Q4

REPORT INFORMATION
  Report Type: Spontaneous
  Country: US (occurrence: US)
  Receive Date: 20131119
  Receipt Date: 20131119
  Transmission Date: 20140711
  Serious: No
  Sender: FDA-Public Use
  Company Number: US-ORACLE-2011S1000077

PATIENT
  Age: 59 Year
  Sex: Male

DRUGS (17)
  1. KRYSTEXXA INJECTION [Suspect]
     Indication: GOUT
     Route: 042
     Dates: start: 201109, end: 201109
  2. KRYSTEXXA INJECTION [Suspect]
     Indication: GOUT
     Route: 042
     Dates: start: 201108, end: 201108
  3. KRYSTEXXA INJECTION [Suspect]
     Indication: GOUT
     Route: 042
     Dates: start: 201108, end: 201108
  4. PREDNISONE [Concomitant]
     Indication: PREMEDICATION
     Route: 048
     Dates: start: 201108
  5. HYDROCORTISONE [Concomitant]
     Indication: PREMEDICATION
     Route: 042
     Dates: start: 201108
  6. BENADRYL [Concomitant]
     Indication: PREMEDICATION
     Route: 042
     Dates: start: 201108
  7. ULORIC [Concomitant]
     Indication: PRODUCT USED FOR UNKNOWN INDICATION
  8. BABY ASPIRIN [Concomitant]
     Indication: PRODUCT USED FOR UNKNOWN INDICATION
  9. HYDRALAZINE [Concomitant]
     Indication: PRODUCT USED FOR UNKNOWN INDICATION
  10. ALDACTONE /00006201/ [Concomitant]
     Indication: PRODUCT USED FOR UNKNOWN INDICATION
  11. NORVASC [Concomitant]
     Indication: PRODUCT USED FOR UNKNOWN INDICATION
  12. TERAZOSIN [Concomitant]
     Indication: PRODUCT USED FOR UNKNOWN INDICATION
  13. PROSCAR [Concomitant]
     Indication: PRODUCT USED FOR UNKNOWN INDICATION
  14. RENAGEL [Concomitant]
     Indication: PRODUCT USED FOR UNKNOWN INDICATION
  15. PERCOCET /00867901/ [Concomitant]
     Indication: PRODUCT USED FOR UNKNOWN INDICATION
  16. INSULIN [Concomitant]
     Indication: PRODUCT USED FOR UNKNOWN INDICATION
  17. LIPITOR [Concomitant]
     Indication: PRODUCT USED FOR UNKNOWN INDICATION

REACTIONS (5)
  - Haemoglobin decreased [Not Recovered/Not Resolved]
  - Haematocrit decreased [Not Recovered/Not Resolved]
  - Therapeutic response unexpected [Unknown]
  - Gastrointestinal haemorrhage [Unknown]
  - Gout [Recovered/Resolved]
